FAERS Safety Report 9819772 (Version 3)
Quarter: 2014Q1

REPORT INFORMATION
  Report Type: Report from Study
  Country: US (occurrence: US)
  Receive Date: 20140116
  Receipt Date: 20140122
  Transmission Date: 20141002
  Serious: Yes (Hospitalization)
  Sender: FDA-Public Use
  Company Number: US-ASTRAZENECA-2013SE89963

PATIENT
  Age: 21733 Day
  Sex: Male
  Weight: 66.5 kg

DRUGS (6)
  1. AZD6140 [Suspect]
     Indication: PERIPHERAL ARTERIAL OCCLUSIVE DISEASE
     Route: 048
     Dates: start: 20131113
  2. ALDACTONE [Concomitant]
     Route: 048
     Dates: start: 2008
  3. ESTRADIOL [Concomitant]
     Indication: HORMONE REPLACEMENT THERAPY
     Route: 048
     Dates: start: 2008
  4. LISINOPRIL [Concomitant]
     Indication: CORONARY ARTERY DISEASE
     Route: 048
     Dates: start: 201001
  5. METOPROLOL [Concomitant]
     Route: 048
     Dates: start: 201001
  6. PRAVACHOL [Concomitant]
     Indication: CORONARY ARTERY DISEASE
     Route: 048
     Dates: start: 201001

REACTIONS (1)
  - Dyspnoea [Recovered/Resolved]
